FAERS Safety Report 4913594-4 (Version None)
Quarter: 2006Q1

REPORT INFORMATION
  Report Type: 
  Country: None (occurrence: None)
  Receive Date: 20060214
  Receipt Date: 20060214
  Transmission Date: 20060701
  Serious: Yes (Life-Threatening, Hospitalization)
  Sender: FDA-Public Use
  Company Number: None

PATIENT
  Sex: Female
  Weight: 59.4212 kg

DRUGS (4)
  1. IMITREX [Suspect]
     Indication: MENSTRUAL DISORDER
     Dosage: 100 MG QD, REPEAT X 1 PRN PO
     Route: 048
     Dates: start: 20050101, end: 20060124
  2. IMITREX [Suspect]
     Indication: MIGRAINE
     Dosage: 100 MG QD, REPEAT X 1 PRN PO
     Route: 048
     Dates: start: 20050101, end: 20060124
  3. FLUOXETINE HCL [Concomitant]
  4. AMITRIPTYLINE HCL [Concomitant]

REACTIONS (4)
  - CARDIOVASCULAR INSUFFICIENCY [None]
  - COLITIS ISCHAEMIC [None]
  - DIARRHOEA HAEMORRHAGIC [None]
  - VASOCONSTRICTION [None]
